FAERS Safety Report 5483606-0 (Version None)
Quarter: 2007Q4

REPORT INFORMATION
  Report Type: 
  Country: None (occurrence: None)
  Receive Date: 20071009
  Receipt Date: 20070928
  Transmission Date: 20080405
  Serious: Yes (Hospitalization)
  Sender: FDA-Public Use
  Company Number: S07-USA-05272-01

PATIENT
  Age: 18 Year
  Sex: Female

DRUGS (3)
  1. LEXAPRO [Suspect]
     Indication: ANXIETY
     Dates: start: 20070710
  2. LEXAPRO [Suspect]
     Indication: DEPRESSION
     Dates: start: 20070710
  3. ALCOHOL [Suspect]
     Dates: start: 20070921, end: 20070921

REACTIONS (5)
  - ALCOHOL USE [None]
  - DRUG WITHDRAWAL SYNDROME [None]
  - DYSPHORIA [None]
  - PSYCHOTIC DISORDER [None]
  - TREATMENT NONCOMPLIANCE [None]
